FAERS Safety Report 8123276-6 (Version None)
Quarter: 2012Q1

REPORT INFORMATION
  Report Type: 
  Country: None (occurrence: None)
  Receive Date: 20120208
  Receipt Date: 20120202
  Transmission Date: 20120608
  Serious: Yes (Other)
  Sender: FDA-Public Use
  Company Number: US-PFIZER INC-2011297829

PATIENT
  Sex: Female

DRUGS (5)
  1. TOVIAZ [Suspect]
     Indication: URINARY INCONTINENCE
     Dosage: 4 MG, DAILY
     Dates: start: 20090101
  2. COUMADIN [Concomitant]
     Dosage: UNK
  3. SYNTHROID [Concomitant]
     Dosage: UNK
  4. TOVIAZ [Suspect]
     Dosage: 4 MG, 1X/DAY
  5. TOVIAZ [Suspect]
     Dosage: 4 MG, 2X/DAY
     Route: 048
     Dates: start: 20111128

REACTIONS (5)
  - DRY THROAT [None]
  - DYSPHAGIA [None]
  - CHOKING [None]
  - THROAT TIGHTNESS [None]
  - DRUG INEFFECTIVE [None]
